FAERS Safety Report 6629577-2 (Version None)
Quarter: 2010Q1

REPORT INFORMATION
  Report Type: 
  Country: None (occurrence: None)
  Receive Date: 20100310
  Receipt Date: 20100310
  Transmission Date: 20100710
  Serious: Yes (Other)
  Sender: FDA-Public Use
  Company Number: None

PATIENT
  Age: 87 Year
  Sex: Female
  Weight: 72.5755 kg

DRUGS (2)
  1. NITROFUR 100 MG [Suspect]
     Indication: URINARY TRACT INFECTION
     Dosage: 2X DAILY 10 DAYS PILLS
     Dates: start: 20100112, end: 20100121
  2. DOXYCYCLINE [Suspect]
     Indication: CELLULITIS
     Dosage: 2X DAILY 10 DAYS PILLS
     Dates: start: 20001001

REACTIONS (5)
  - DYSSTASIA [None]
  - MONOPARESIS [None]
  - PAIN IN EXTREMITY [None]
  - RASH [None]
  - SWELLING FACE [None]
